FAERS Safety Report 24129560 (Version 1)
Quarter: 2024Q3

REPORT INFORMATION
  Report Type: Spontaneous
  Country: RS (occurrence: RS)
  Receive Date: 20240724
  Receipt Date: 20240724
  Transmission Date: 20241017
  Serious: Yes (Hospitalization)
  Sender: ELI LILLY AND CO
  Company Number: RS-ELI_LILLY_AND_COMPANY-RS202407011588

PATIENT
  Age: 49 Year
  Sex: Female

DRUGS (1)
  1. OLUMIANT [Suspect]
     Active Substance: BARICITINIB
     Indication: Product used for unknown indication
     Dosage: 4 MG, UNKNOWN
     Route: 065

REACTIONS (5)
  - Abscess [Recovering/Resolving]
  - Swelling [Recovering/Resolving]
  - Body temperature increased [Recovering/Resolving]
  - Tonsillitis [Recovering/Resolving]
  - Upper respiratory tract infection [Recovering/Resolving]
